FAERS Safety Report 5263273-1 (Version None)
Quarter: 2007Q1

REPORT INFORMATION
  Report Type: 
  Country: None (occurrence: None)
  Receive Date: 20070312
  Receipt Date: 20070226
  Transmission Date: 20070707
  Serious: Yes (Hospitalization)
  Sender: FDA-Public Use
  Company Number: US-ELI_LILLY_AND_COMPANY-US200702005220

PATIENT
  Age: 7 Year
  Sex: Male

DRUGS (2)
  1. STRATTERA [Suspect]
     Indication: ATTENTION DEFICIT/HYPERACTIVITY DISORDER
     Dosage: 18 MG, DAILY (1/D)
     Dates: start: 20070212, end: 20070222
  2. ACETAMINOPHEN [Concomitant]

REACTIONS (13)
  - DEHYDRATION [None]
  - DRUG TOXICITY [None]
  - DYSARTHRIA [None]
  - FATIGUE [None]
  - HEADACHE [None]
  - HEART RATE INCREASED [None]
  - LETHARGY [None]
  - NECK PAIN [None]
  - ORAL DISCHARGE [None]
  - ORAL INTAKE REDUCED [None]
  - PALLOR [None]
  - PARALYSIS [None]
  - SOMNOLENCE [None]
